FAERS Safety Report 7167644-8 (Version None)
Quarter: 2010Q4

REPORT INFORMATION
  Report Type: 
  Country: None (occurrence: None)
  Receive Date: 20101216
  Receipt Date: 20100622
  Transmission Date: 20110411
  Serious: No
  Sender: FDA-Public Use
  Company Number: A0866505A

PATIENT
  Age: 62 Year
  Sex: Female

DRUGS (1)
  1. COMMIT [Suspect]
     Dates: start: 20100622, end: 20100622

REACTIONS (2)
  - FEELING JITTERY [None]
  - NONSPECIFIC REACTION [None]
